FAERS Safety Report 5066524-1 (Version None)
Quarter: 2006Q3

REPORT INFORMATION
  Report Type: 
  Country: None (occurrence: None)
  Receive Date: 20060731
  Receipt Date: 20060731
  Transmission Date: 20061208
  Serious: Yes (Disabling)
  Sender: FDA-Public Use
  Company Number: None

PATIENT
  Age: 88 Year
  Sex: Male
  Weight: 53.4 kg

DRUGS (4)
  1. VELCADE [Suspect]
     Indication: MULTIPLE MYELOMA
     Dosage: 1.3 MG/M2 DAYS 1, 4, 8, 11 IV
     Route: 042
     Dates: start: 20060523, end: 20060523
  2. DOXORUBICIN HCL [Suspect]
     Indication: MULTIPLE MYELOMA
     Dosage: 15 MG/M2 DAYS 1 AND 4 IV
     Route: 042
     Dates: start: 20060516, end: 20060516
  3. VITAMIN B-12 [Concomitant]
  4. GLYYBURIDE [Concomitant]

REACTIONS (4)
  - ASPIRATION [None]
  - COUGH [None]
  - VOCAL CORD PARALYSIS [None]
  - WEIGHT DECREASED [None]
